FAERS Safety Report 13875225 (Version 4)
Quarter: 2018Q2

REPORT INFORMATION
  Report Type: Spontaneous
  Country: NL (occurrence: NL)
  Receive Date: 20170816
  Receipt Date: 20180524
  Transmission Date: 20180711
  Serious: Yes (Death, Other)
  Sender: FDA-Public Use
  Company Number: NL-TERSERA THERAPEUTICS, LLC-2024728

PATIENT
  Age: 75 Year
  Sex: Male

DRUGS (2)
  1. ZOLADEX [Suspect]
     Active Substance: GOSERELIN ACETATE
     Indication: PROSTATE CANCER
     Route: 058
     Dates: start: 20130905
  2. TAMSULOSIN HYDROCHLORIDE. [Concomitant]
     Active Substance: TAMSULOSIN HYDROCHLORIDE
     Route: 065

REACTIONS (12)
  - Renal neoplasm [Unknown]
  - Injection site bruising [Unknown]
  - Hot flush [Unknown]
  - Fatigue [Unknown]
  - Micturition urgency [Unknown]
  - Back pain [Unknown]
  - Malignant neoplasm progression [Unknown]
  - Hypoaesthesia [Unknown]
  - Death [Fatal]
  - Parkinson^s disease [Unknown]
  - Pain [Unknown]
  - Dizziness [Unknown]

NARRATIVE: CASE EVENT DATE: 20170725
